FAERS Safety Report 5371174-3 (Version None)
Quarter: 2007Q2

REPORT INFORMATION
  Report Type: 
  Country: None (occurrence: None)
  Receive Date: 20070626
  Receipt Date: 20070620
  Transmission Date: 20071010
  Serious: Yes (Hospitalization, Other)
  Sender: FDA-Public Use
  Company Number: US-PFIZER INC-2007050654

PATIENT
  Age: 63 Year
  Sex: Female

DRUGS (13)
  1. GENOTROPIN [Suspect]
  2. BYETTA [Concomitant]
  3. LANTUS [Concomitant]
  4. DAYPRO [Concomitant]
  5. SEROQUEL [Concomitant]
  6. PEPCID [Concomitant]
  7. ZOCOR [Concomitant]
  8. METFORMIN HCL [Concomitant]
  9. SYNTHROID [Concomitant]
  10. PROTONIX [Concomitant]
  11. ZOLOFT [Concomitant]
  12. ZANAFLEX [Concomitant]
  13. XYREM [Concomitant]

REACTIONS (2)
  - NOSE DEFORMITY [None]
  - UNEVALUABLE EVENT [None]
